FAERS Safety Report 7447136-9 (Version None)
Quarter: 2011Q2

REPORT INFORMATION
  Report Type: 
  Country: None (occurrence: None)
  Receive Date: 20110429
  Receipt Date: 20101207
  Transmission Date: 20111010
  Serious: No
  Sender: FDA-Public Use
  Company Number: US-ASTRAZENECA-2010SE58037

PATIENT
  Sex: Female

DRUGS (8)
  1. NEXIUM [Suspect]
     Indication: GASTROOESOPHAGEAL REFLUX DISEASE
     Route: 048
     Dates: start: 20070101
  2. VALIUM [Concomitant]
  3. VICODIN [Concomitant]
  4. LEVOTHYROXINE SODIUM [Concomitant]
  5. FENTANYL [Concomitant]
  6. LEXAPRO [Concomitant]
  7. AVAPRO [Concomitant]
  8. FLEXERIL [Concomitant]

REACTIONS (2)
  - BLOOD PRESSURE INCREASED [None]
  - DRUG DOSE OMISSION [None]
